FAERS Safety Report 5940787-X (Version None)
Quarter: 2008Q4

REPORT INFORMATION
  Report Type: 
  Country: None (occurrence: None)
  Receive Date: 20081104
  Receipt Date: 20081024
  Transmission Date: 20090506
  Serious: Yes (Other)
  Sender: FDA-Public Use
  Company Number: KR-JNJFOC-20081005967

PATIENT
  Sex: Female
  Weight: 56.1 kg

DRUGS (1)
  1. PALIPERIDONE [Suspect]
     Indication: SCHIZOPHRENIA
     Route: 048

REACTIONS (7)
  - AKATHISIA [None]
  - ANXIETY [None]
  - CHEST DISCOMFORT [None]
  - FEELING ABNORMAL [None]
  - STRESS [None]
  - SUICIDE ATTEMPT [None]
  - VASCULAR INJURY [None]
